FAERS Safety Report 17621982 (Version 1)
Quarter: 2020Q2

REPORT INFORMATION
  Report Type: Spontaneous
  Country: CN (occurrence: CN)
  Receive Date: 20200403
  Receipt Date: 20200403
  Transmission Date: 20200713
  Serious: Yes (Hospitalization)
  Sender: FDA-Public Use
  Company Number: CN-GLAXOSMITHKLINE-CN2020APC055228

PATIENT
  Age: 53 Year
  Sex: Male
  Weight: 65 kg

DRUGS (3)
  1. SALBUTAMOL [Suspect]
     Active Substance: ALBUTEROL
     Indication: DYSPNOEA
     Dosage: UNK
     Dates: start: 20200312
  2. FENBID [Suspect]
     Active Substance: IBUPROFEN
     Indication: TOOTHACHE
     Dosage: 0.3 G, 1D
     Route: 048
     Dates: start: 20200309, end: 20200309
  3. FENBID [Suspect]
     Active Substance: IBUPROFEN
     Dosage: 0.3 G, 1D
     Dates: start: 20200312

REACTIONS (9)
  - Drug ineffective [Unknown]
  - Chest discomfort [Unknown]
  - Wheezing [Unknown]
  - Cough [Unknown]
  - Hyperhidrosis [Unknown]
  - Productive cough [Unknown]
  - Lack of spontaneous speech [Unknown]
  - Asthma [Unknown]
  - Dyspnoea [Recovering/Resolving]

NARRATIVE: CASE EVENT DATE: 20200309
